FAERS Safety Report 10350442 (Version 1)
Quarter: 2014Q3

REPORT INFORMATION
  Report Type: Report from Study
  Country: US (occurrence: US)
  Receive Date: 20140730
  Receipt Date: 20140730
  Transmission Date: 20150326
  Serious: No
  Sender: FDA-Public Use
  Company Number: US-ABBVIE-13P-163-1138833-00

PATIENT
  Age: 62 Year
  Sex: Male

DRUGS (5)
  1. NIASPAN [Suspect]
     Active Substance: NIACIN
     Dates: start: 201212
  2. NORVASC [Concomitant]
     Active Substance: AMLODIPINE BESYLATE
     Indication: PRODUCT USED FOR UNKNOWN INDICATION
  3. ASA [Concomitant]
     Active Substance: ASPIRIN
     Indication: PRODUCT USED FOR UNKNOWN INDICATION
     Dosage: BEFORE NIASPAN COATED DOSE
  4. NIASPAN [Suspect]
     Active Substance: NIACIN
     Indication: BLOOD CHOLESTEROL INCREASED
     Dosage: AT BEDTIME
     Dates: start: 201108, end: 201208
  5. NIASPAN [Suspect]
     Active Substance: NIACIN
     Dates: start: 201208, end: 201212

REACTIONS (2)
  - Cough [Unknown]
  - Flushing [Recovering/Resolving]

NARRATIVE: CASE EVENT DATE: 201108
